FAERS Safety Report 5193894-6 (Version None)
Quarter: 2006Q4

REPORT INFORMATION
  Report Type: 
  Country: None (occurrence: None)
  Receive Date: 20061222
  Receipt Date: 20061212
  Transmission Date: 20070319
  Serious: Yes (Hospitalization, Other)
  Sender: FDA-Public Use
  Company Number: 2006-151800-NL

PATIENT
  Age: 29 Year
  Sex: Female
  Weight: 54.4 kg

DRUGS (2)
  1. PUREGON [Suspect]
     Indication: IN VITRO FERTILISATION
     Dosage: 200 IG DAILY
     Dates: start: 20061024, end: 20061101
  2. ORGALUTRAN [Suspect]
     Dosage: 215 UG DAILY
     Dates: start: 20061031, end: 20061101

REACTIONS (3)
  - ABORTION INDUCED [None]
  - DRUG EXPOSURE DURING PREGNANCY [None]
  - ECTOPIC PREGNANCY [None]
